FAERS Safety Report 11092389 (Version 1)
Quarter: 2015Q2

REPORT INFORMATION
  Report Type: Spontaneous
  Country: GB (occurrence: None)
  Receive Date: 20150504
  Receipt Date: 20150504
  Transmission Date: 20150821
  Serious: Yes (Death, Other)
  Sender: FDA-Public Use
  Company Number: GB2015GSK059254

PATIENT
  Age: 14 Year
  Sex: Male

DRUGS (4)
  1. LAMIVUDINE (LAMIVUDINE) [Suspect]
     Active Substance: LAMIVUDINE
     Indication: HIV INFECTION
  2. EFAVIRENZ (EFAVIRENZ) [Suspect]
     Active Substance: EFAVIRENZ
     Indication: HIV INFECTION
  3. ZIDOVUDINE (ZIDOVUDINE) [Suspect]
     Active Substance: ZIDOVUDINE
     Indication: HIV INFECTION
  4. ABACAVIR (ABACAVIR SULPHATE) UNKNOWN [Suspect]
     Active Substance: ABACAVIR
     Indication: HIV INFECTION

REACTIONS (11)
  - Diarrhoea [None]
  - Respiratory disorder [None]
  - Abdominal pain [None]
  - Mycobacterium avium complex infection [None]
  - Pleural effusion [None]
  - Pyrexia [None]
  - Granuloma [None]
  - Abdominal lymphadenopathy [None]
  - Lung infiltration [None]
  - Immune reconstitution inflammatory syndrome [None]
  - Hepatomegaly [None]
